FAERS Safety Report 9405153 (Version 3)
Quarter: 2013Q3

REPORT INFORMATION
  Report Type: Report from Study
  Country: GB (occurrence: GB)
  Receive Date: 20130717
  Receipt Date: 20130807
  Transmission Date: 20140515
  Serious: Yes (Hospitalization, Other)
  Sender: FDA-Public Use
  Company Number: GB-PFIZER INC-2013203697

PATIENT
  Age: 14 Year
  Sex: Male

DRUGS (32)
  1. DOXORUBICIN [Suspect]
     Indication: NEOPLASM MALIGNANT
     Dosage: 48 MG, DAILY FOR DAY1 AND DAY2
     Route: 042
     Dates: start: 20121102, end: 20121102
  2. DOXORUBICIN [Suspect]
     Dosage: 48 MG, UNK
     Route: 042
     Dates: start: 20121103
  3. DOXORUBICIN [Suspect]
     Dosage: 45 MG, 1/DAY DAILY FOR 2DAYS
     Route: 042
     Dates: start: 20121123
  4. CYCLOPHOSPHAMIDE [Suspect]
     Indication: NEOPLASM MALIGNANT
     Dosage: 29 MG, 1X/DAY
     Route: 048
     Dates: start: 20130531, end: 20130701
  5. VINORELBINE [Suspect]
     Dosage: 29 MG, SINGLE (ONCE)
     Route: 040
     Dates: start: 20130531
  6. IFOSFAMIDE [Suspect]
     Indication: NEOPLASM MALIGNANT
     Dosage: 4650 MG, UNK DAY 1, DAY 2
     Route: 042
     Dates: start: 20121102
  7. IFOSFAMIDE [Suspect]
     Dosage: 4800 MG, UNK DAY 1, DAY 2
     Route: 042
     Dates: start: 20121123
  8. IFOSFAMIDE [Suspect]
     Dosage: UNK
     Dates: start: 20130215
  9. VINCRISTINE [Suspect]
     Indication: NEOPLASM MALIGNANT
     Dosage: 2 MG, UNK ONCE
     Route: 040
     Dates: start: 20121130
  10. VINCRISTINE [Suspect]
     Dosage: 2 MG, UNK DAY 1, DAY 8, DAY 15
     Route: 040
     Dates: start: 20121123
  11. VINCRISTINE [Suspect]
     Dosage: 2 MG, UNK ON DAY1, DAY8 AND DAY15
     Route: 040
     Dates: start: 20121102
  12. VINCRISTINE [Suspect]
     Dosage: UNK
     Dates: start: 20130215
  13. ACTINOMYCIN D [Suspect]
     Indication: NEOPLASM MALIGNANT
     Dosage: 2 MG, UNK
     Route: 040
     Dates: start: 20121102
  14. ACTINOMYCIN D [Suspect]
     Dosage: 2 MG, UNK ONCE
     Route: 040
     Dates: start: 20121123
  15. ACTINOMYCIN D [Suspect]
     Dosage: UNK
     Dates: start: 20130215
  16. MOVICOL [Concomitant]
     Dosage: 2 DF, UNK 2 SACHETS
     Dates: start: 20121101
  17. LACTULOSE [Concomitant]
     Dosage: 15 ML, 2X/DAY
  18. LACTULOSE [Concomitant]
     Dosage: 3 ML, UNK
     Dates: start: 20121101
  19. SENNA [Concomitant]
     Dosage: 7.5 MG, 2X/DAY
     Dates: start: 20121101
  20. ONDANSETRON [Concomitant]
     Dosage: 8 MG, 2X/DAY
     Dates: start: 20121102
  21. ONDANSETRON [Concomitant]
     Dosage: 8 MG, UNK
     Dates: start: 20130628
  22. CYCLIZINE [Concomitant]
     Dosage: 50 MG, UNK
     Dates: start: 20121102
  23. PARACETAMOL [Concomitant]
     Dosage: 750 MG, AS NEEDED
     Dates: start: 20121102
  24. MORPHINE SULFATE [Concomitant]
     Dosage: 40 MG, 2X/DAY
     Dates: start: 20121101
  25. MORPHINE SULFATE [Concomitant]
     Dosage: UNK 10 - 15 MG
     Dates: start: 20121101
  26. BISACODYL [Concomitant]
     Dosage: 10 MG, UNK
     Dates: start: 20121101
  27. MORPHINE SULFATE [Concomitant]
     Dosage: 80 MG, UNK
     Dates: start: 20121101
  28. SEPTRIN [Concomitant]
     Dosage: 960 MG, 2X/WEEK SATURDAY AND SUNDAY
     Dates: start: 20121101
  29. GELCLAIR [Concomitant]
     Dosage: 1 DF,  IN 1 (UNITS NOT PROVIDED) AS NEEDED
     Dates: start: 20121109
  30. GABAPENTIN [Concomitant]
     Dosage: 900 MG, UNK
     Dates: start: 20130607
  31. CETIRIZINE HYDROCHLORIDE [Concomitant]
     Dosage: 10 MG, UNK
     Dates: start: 20130628
  32. SEPTRIN [Concomitant]
     Dosage: UNK, ON SATURDAY AND SUNDAY ONLY
     Dates: start: 20121025

REACTIONS (8)
  - Febrile neutropenia [Recovered/Resolved]
  - Febrile neutropenia [Recovered/Resolved]
  - Febrile neutropenia [Recovered/Resolved]
  - Headache [Recovered/Resolved]
  - Sepsis [Recovered/Resolved]
  - Tachycardia [Recovered/Resolved]
  - Chills [Recovered/Resolved]
  - Pyrexia [Recovered/Resolved]
